FAERS Safety Report 5892588-9 (Version None)
Quarter: 2008Q3

REPORT INFORMATION
  Report Type: 
  Country: None (occurrence: None)
  Receive Date: 20080923
  Receipt Date: 20080911
  Transmission Date: 20090109
  Serious: Yes (Hospitalization)
  Sender: FDA-Public Use
  Company Number: SE-ROCHE-585797

PATIENT
  Sex: Male

DRUGS (6)
  1. MYCOPHENOLATE MOFETIL [Suspect]
     Dosage: DOSAGE: DAILY
     Route: 048
     Dates: start: 20051103
  2. ENALAPRIL MALEATE [Concomitant]
     Indication: HYPERTENSION
     Dosage: DOSAGE: DAILY
     Route: 048
     Dates: start: 20010522, end: 20080713
  3. ENALAPRIL MALEATE [Concomitant]
     Route: 048
     Dates: start: 20080718
  4. PREDNISOLONE [Concomitant]
     Dosage: DOSAGE: DAILY
     Route: 048
     Dates: start: 20021003
  5. CYCLOSPORINE [Concomitant]
     Dosage: DOSAGE; DAILY
     Route: 048
     Dates: start: 20070322
  6. METOPROLOL TARTRATE [Concomitant]
     Indication: HYPERTENSION
     Dosage: DRUG: METEPROLOL DOSAGE: DAILY
     Route: 048
     Dates: start: 20070427

REACTIONS (8)
  - CONGENITAL HYDRONEPHROSIS [None]
  - DIARRHOEA [None]
  - GASTROENTERITIS [None]
  - HYPERTENSION [None]
  - NAUSEA [None]
  - PYELONEPHRITIS [None]
  - RENAL DISORDER [None]
  - VOMITING [None]
